FAERS Safety Report 25243742 (Version 2)
Quarter: 2025Q2

REPORT INFORMATION
  Report Type: Spontaneous
  Country: JP (occurrence: JP)
  Receive Date: 20250428
  Receipt Date: 20250509
  Transmission Date: 20250717
  Serious: Yes (Other)
  Sender: JOHNSON AND JOHNSON
  Company Number: JP-JNJFOC-20250408914

PATIENT

DRUGS (1)
  1. EVITHROM [Suspect]
     Active Substance: HUMAN THROMBIN
     Indication: Hepatectomy
     Route: 061

REACTIONS (4)
  - Haemorrhage [Recovered/Resolved]
  - Venous injury [Recovered/Resolved]
  - Device malfunction [Unknown]
  - Device use issue [Unknown]

NARRATIVE: CASE EVENT DATE: 20250331
